FAERS Safety Report 18534406 (Version 1)
Quarter: 2020Q4

REPORT INFORMATION
  Report Type: Spontaneous
  Country: BR (occurrence: BR)
  Receive Date: 20201123
  Receipt Date: 20201123
  Transmission Date: 20210114
  Serious: Yes (Other)
  Sender: FDA-Public Use
  Company Number: NVSC2020BR307359

PATIENT
  Age: 54 Year
  Sex: Female

DRUGS (4)
  1. RIBOCICLIB. [Suspect]
     Active Substance: RIBOCICLIB
     Indication: BREAST CANCER METASTATIC
     Dosage: 600 MG, QD (21 DAYS EVERY 4 WEEKS)
     Route: 048
     Dates: start: 20190708
  2. FULVESTRANT. [Suspect]
     Active Substance: FULVESTRANT
     Indication: BREAST CANCER METASTATIC
     Dosage: 500 MG (4/4 WEEKS)
     Route: 030
     Dates: start: 20190708
  3. GOSERELIN [Suspect]
     Active Substance: GOSERELIN
     Indication: BREAST CANCER METASTATIC
     Dosage: UNK
     Route: 065
     Dates: start: 200410
  4. TAMOXIFEN [Suspect]
     Active Substance: TAMOXIFEN
     Indication: BREAST CANCER METASTATIC
     Dosage: UNK
     Route: 065
     Dates: start: 200410

REACTIONS (5)
  - Weight decreased [Unknown]
  - Acute oesophageal mucosal lesion [Unknown]
  - Dysphagia [Unknown]
  - Neoplasm malignant [Unknown]
  - Pulmonary mass [Unknown]
